FAERS Safety Report 12623123 (Version 1)
Quarter: 2016Q3

REPORT INFORMATION
  Report Type: Spontaneous
  Country: US (occurrence: US)
  Receive Date: 20160804
  Receipt Date: 20160804
  Transmission Date: 20161109
  Serious: Yes (Other)
  Sender: FDA-Public Use
  Company Number: US-BAYER-2016-149956

PATIENT
  Age: 9 Year
  Sex: Female
  Weight: 22.67 kg

DRUGS (1)
  1. COPPERTONE KIDS [Suspect]
     Active Substance: AVOBENZONE\HOMOSALATE\OCTISALATE\OXYBENZONE
     Indication: PROPHYLAXIS AGAINST SOLAR RADIATION
     Dosage: 1 DF, Q1HR
     Route: 061

REACTIONS (5)
  - Chemical injury [Not Recovered/Not Resolved]
  - Thermal burn [Not Recovered/Not Resolved]
  - Burns first degree [Not Recovered/Not Resolved]
  - Crying [None]
  - Drug ineffective [None]

NARRATIVE: CASE EVENT DATE: 20160730
